FAERS Safety Report 24812860 (Version 2)
Quarter: 2025Q1

REPORT INFORMATION
  Report Type: Spontaneous
  Country: US (occurrence: US)
  Receive Date: 20250107
  Receipt Date: 20250123
  Transmission Date: 20250408
  Serious: No
  Sender: HETERO
  Company Number: US-BMS-IMIDS-REMS_SI-12241760

PATIENT
  Sex: Male

DRUGS (1)
  1. LENALIDOMIDE [Suspect]
     Active Substance: LENALIDOMIDE
     Indication: Product used for unknown indication
     Route: 065
     Dates: start: 20241214

REACTIONS (2)
  - Product quality issue [Unknown]
  - Product dose omission issue [Unknown]
